FAERS Safety Report 8763669 (Version 2)
Quarter: 2012Q4

REPORT INFORMATION
  Report Type: 
  Country: US (occurrence: US)
  Receive Date: 20120828
  Receipt Date: 20120917
  Transmission Date: 20130627
  Serious: Yes (Hospitalization)
  Sender: FDA-Public Use
  Company Number: US-VERTEX PHARMACEUTICAL INC.-2012-019744

PATIENT
  Sex: Female

DRUGS (9)
  1. INCIVEK [Suspect]
     Indication: HEPATITIS C
     Dosage: 750 mg, tid
     Route: 048
     Dates: start: 201202
  2. PEGASYS [Suspect]
     Indication: HEPATITIS C
  3. RIBAVIRIN [Suspect]
     Indication: HEPATITIS C
  4. ALBUTEROL                          /00139501/ [Concomitant]
  5. GABAPENTIN [Concomitant]
  6. HYDROCODONE [Concomitant]
  7. LANTUS [Concomitant]
  8. NOVOLOG [Concomitant]
  9. LISINOPRIL [Concomitant]

REACTIONS (7)
  - Headache [Unknown]
  - Vision blurred [Unknown]
  - Nausea [Unknown]
  - Rash papular [Recovered/Resolved]
  - Skin ulcer [Recovered/Resolved]
  - Pruritus [Unknown]
  - Vomiting [Unknown]
